FAERS Safety Report 14149078 (Version 2)
Quarter: 2017Q4

REPORT INFORMATION
  Report Type: Spontaneous
  Country: BR (occurrence: BR)
  Receive Date: 20171101
  Receipt Date: 20171226
  Transmission Date: 20180321
  Serious: Yes (Hospitalization)
  Sender: FDA-Public Use
  Company Number: BR-SYMPLMED PHARMACEUTICALS-2017SYMPLMED000480

PATIENT

DRUGS (2)
  1. ACERTANLO NOS (AMLODIPINE BESYLATE\PERINDOPRIL ARGININE) [Suspect]
     Active Substance: AMLODIPINE BESYLATE\PERINDOPRIL ARGININE
     Indication: HYPERTENSION
     Dosage: 1 (3.5MG/2.5MG) TABLET QD
     Route: 065
     Dates: start: 201706, end: 2017
  2. ACERTANLO NOS (AMLODIPINE BESYLATE\PERINDOPRIL ARGININE) [Suspect]
     Active Substance: AMLODIPINE BESYLATE\PERINDOPRIL ARGININE
     Dosage: 1 (3.5MG/2.5MG) TABLET QD
     Route: 065
     Dates: start: 2017, end: 201710

REACTIONS (3)
  - Carotid artery occlusion [Recovered/Resolved with Sequelae]
  - Cough [Recovered/Resolved]
  - Thrombotic stroke [Recovered/Resolved with Sequelae]

NARRATIVE: CASE EVENT DATE: 201706
